FAERS Safety Report 5008351-7 (Version None)
Quarter: 2006Q2

REPORT INFORMATION
  Report Type: 
  Country: None (occurrence: None)
  Receive Date: 20060404
  Receipt Date: 20060126
  Transmission Date: 20061013
  Serious: No
  Sender: FDA-Public Use
  Company Number: US200601005460

PATIENT
  Age: 56 Year
  Sex: Female

DRUGS (5)
  1. CYMBALTA [Suspect]
     Indication: DEPRESSION
     Dosage: 60 MG, CAPSULE , ORAL  ; 30 MG, DAILY (1/D), ORAL
     Route: 048
  2. WELLBUTRIN SR [Concomitant]
  3. BUSPAR /AUS/ (BUSPIRONE HYDROCHLORIDE) [Concomitant]
  4. AMBIEN [Concomitant]
  5. LORAZEPAM [Concomitant]

REACTIONS (2)
  - ADVERSE DRUG REACTION [None]
  - SUICIDAL IDEATION [None]
